FAERS Safety Report 19406773 (Version 1)
Quarter: 2021Q2

REPORT INFORMATION
  Report Type: Spontaneous
  Country: HN (occurrence: HN)
  Receive Date: 20210611
  Receipt Date: 20210611
  Transmission Date: 20210717
  Serious: Yes (Other)
  Sender: FDA-Public Use
  Company Number: HN-ROCHE-2846764

PATIENT
  Sex: Male

DRUGS (1)
  1. ACTEMRA [Suspect]
     Active Substance: TOCILIZUMAB
     Indication: COVID-19
     Dosage: FREQUENCY: 2 TO 3 APPLICATION, EMERGENCY USE
     Route: 042

REACTIONS (3)
  - Loss of consciousness [Unknown]
  - Renal failure [Not Recovered/Not Resolved]
  - Off label use [Unknown]
